FAERS Safety Report 10221380 (Version 1)
Quarter: 2014Q2

REPORT INFORMATION
  Report Type: Spontaneous
  Country: PH (occurrence: PH)
  Receive Date: 20140606
  Receipt Date: 20140606
  Transmission Date: 20141212
  Serious: Yes (Other)
  Sender: FDA-Public Use
  Company Number: PH-PFIZER INC-2014156125

PATIENT
  Sex: 0

DRUGS (1)
  1. PRISTIQ SR [Suspect]
     Dosage: UNK

REACTIONS (1)
  - Bipolar disorder [Unknown]
